FAERS Safety Report 5679783-9 (Version None)
Quarter: 2008Q1

REPORT INFORMATION
  Report Type: 
  Country: None (occurrence: None)
  Receive Date: 20080321
  Receipt Date: 20080310
  Transmission Date: 20080703
  Serious: Yes (Other)
  Sender: FDA-Public Use
  Company Number: DSM-2008-00258

PATIENT
  Age: 57 Year
  Sex: Male
  Weight: 80 kg

DRUGS (1)
  1. OLMESARTAN MEDOXOMIL [Suspect]
     Indication: HYPERTENSION
     Dosage: 10 MG (10 MG, 1 IN 1 D, ORAL)
     Route: 048
     Dates: start: 20080301, end: 20080301

REACTIONS (4)
  - ABDOMINAL PAIN [None]
  - CYSTITIS [None]
  - HAEMATURIA [None]
  - INFLUENZA [None]
